FAERS Safety Report 9651501 (Version 2)
Quarter: 2013Q4

REPORT INFORMATION
  Report Type: Spontaneous
  Country: US (occurrence: US)
  Receive Date: 20131029
  Receipt Date: 20131029
  Transmission Date: 20140711
  Serious: Yes (Disabling, Other)
  Sender: FDA-Public Use
  Company Number: US-JNJFOC-20130813660

PATIENT
  Age: 89 Year
  Sex: Male
  Weight: 91.63 kg

DRUGS (7)
  1. XARELTO [Suspect]
     Indication: DEEP VEIN THROMBOSIS
     Route: 048
     Dates: start: 20130711
  2. XARELTO [Suspect]
     Indication: CEREBROVASCULAR ACCIDENT PROPHYLAXIS
     Route: 048
     Dates: start: 20130711
  3. XARELTO [Suspect]
     Indication: ATRIAL FIBRILLATION
     Route: 048
     Dates: start: 20130711
  4. ASA [Suspect]
     Indication: DEEP VEIN THROMBOSIS
     Route: 065
  5. WARFARIN [Suspect]
     Indication: DEEP VEIN THROMBOSIS
     Route: 065
  6. WARFARIN [Suspect]
     Indication: DEEP VEIN THROMBOSIS
     Route: 065
     Dates: end: 20130708
  7. LOVENOX [Suspect]
     Indication: DEEP VEIN THROMBOSIS
     Route: 065

REACTIONS (2)
  - Haemorrhage intracranial [Unknown]
  - Hemiparesis [Unknown]
